FAERS Safety Report 10466983 (Version 1)
Quarter: 2014Q3

REPORT INFORMATION
  Report Type: Spontaneous
  Country: JP (occurrence: JP)
  Receive Date: 20140922
  Receipt Date: 20140922
  Transmission Date: 20150326
  Serious: Yes (Other)
  Sender: FDA-Public Use
  Company Number: JP-SA-2014SA129149

PATIENT
  Age: 70 Year
  Sex: Male

DRUGS (2)
  1. BCG FOR IMMUNOTHERAPY [Suspect]
     Active Substance: BCG VACCINE
     Indication: BLADDER CANCER
     Route: 043
  2. BCG FOR IMMUNOTHERAPY [Suspect]
     Active Substance: BCG VACCINE
     Indication: BLADDER CANCER
     Route: 043

REACTIONS (1)
  - Sarcoidosis [Unknown]
